FAERS Safety Report 8017926-2 (Version None)
Quarter: 2012Q1

REPORT INFORMATION
  Report Type: 
  Country: None (occurrence: None)
  Receive Date: 20120103
  Receipt Date: 20111219
  Transmission Date: 20120608
  Serious: Yes (Other)
  Sender: FDA-Public Use
  Company Number: BR-SANOFI-AVENTIS-2011SA083350

PATIENT
  Age: 51 Year
  Sex: Female
  Weight: 40 kg

DRUGS (2)
  1. AUTOPEN 24 [Concomitant]
     Indication: DEVICE THERAPY
  2. LANTUS [Suspect]
     Dosage: THERAPY STARTED 8-9 YEARS AGO; TIME: BETWEEN 2-3 PM
     Route: 065

REACTIONS (11)
  - INJECTION SITE NODULE [None]
  - MACULOPATHY [None]
  - HYPERTENSION [None]
  - GLYCOSYLATED HAEMOGLOBIN INCREASED [None]
  - GASTROOESOPHAGEAL REFLUX DISEASE [None]
  - DIABETIC RETINOPATHY [None]
  - ARTHROPATHY [None]
  - INJECTION SITE MASS [None]
  - INJECTION SITE REACTION [None]
  - LACTOSE INTOLERANCE [None]
  - CARPAL TUNNEL SYNDROME [None]
